FAERS Safety Report 4285656-9 (Version None)
Quarter: 2004Q1

REPORT INFORMATION
  Report Type: 
  Country: None (occurrence: None)
  Receive Date: 20040202
  Receipt Date: 20040121
  Transmission Date: 20041129
  Serious: Yes (Death, Other)
  Sender: FDA-Public Use
  Company Number: 001-0073-990280

PATIENT
  Age: 28 Year
  Sex: Female

DRUGS (3)
  1. DILANTIN KAPSEAL [Suspect]
     Indication: CONVULSION
     Dosage: 300 MG (100 MG, TID), ORAL
     Route: 048
     Dates: start: 19950101, end: 19990518
  2. PHENYTOIN [Suspect]
     Indication: CONVULSION
     Dosage: 300 MG (100 MG, TID), ORAL
     Route: 048
     Dates: start: 19990518, end: 19990520
  3. BACTRIM [Concomitant]

REACTIONS (6)
  - CONVULSION [None]
  - DRUG EFFECT DECREASED [None]
  - DRUG LEVEL DECREASED [None]
  - FEELING ABNORMAL [None]
  - PHARMACEUTICAL PRODUCT COMPLAINT [None]
  - TREATMENT NONCOMPLIANCE [None]
